FAERS Safety Report 14285801 (Version 2)
Quarter: 2018Q1

REPORT INFORMATION
  Report Type: Spontaneous
  Country: US (occurrence: US)
  Receive Date: 20171214
  Receipt Date: 20180110
  Transmission Date: 20180509
  Serious: No
  Sender: FDA-Public Use
  Company Number: US-009507513-1712USA001260

PATIENT
  Sex: Female
  Weight: 65.77 kg

DRUGS (17)
  1. PRINIVIL [Suspect]
     Active Substance: LISINOPRIL
     Dosage: 2.5 MG, ONE A DAY
  2. BAYER ASPIRIN [Concomitant]
     Active Substance: ASPIRIN
     Indication: CARDIAC DISORDER
  3. GARLIC. [Concomitant]
     Active Substance: GARLIC
     Indication: ROUTINE HEALTH MAINTENANCE
     Dosage: 1 SOFT GEL, 1000 MG, TAKING FOR MORE THAN 25 YEARS
  4. PRINIVIL [Suspect]
     Active Substance: LISINOPRIL
     Indication: DIABETES MELLITUS
     Dosage: 20 MG, UNK
  5. GREAT HEALTHWORKS OMEGA XL [Concomitant]
     Indication: ROUTINE HEALTH MAINTENANCE
     Dosage: 300 MG, 2 SOFT GELS IN THE MORNING AND IN THE EVENING, HELP HER HEALTH
  6. ATORVASTATIN [Concomitant]
     Active Substance: ATORVASTATIN
     Indication: DIABETES MELLITUS
     Dosage: 10 MG, ONE TABLET AT BEDTIME
  7. ASCORBIC ACID (+) CRANBERRY [Concomitant]
     Indication: URINARY TRACT DISORDER
     Dosage: 4200 MG, DAILY, TAKING FOR AT LEAST 2 YEARS
  8. CALCIUM D3 [Concomitant]
     Active Substance: CALCIUM\CHOLECALCIFEROL
     Indication: BONE DISORDER
     Dosage: 600 MG, TAKING FOR YEARS
  9. TRAMADOL HYDROCHLORIDE. [Concomitant]
     Active Substance: TRAMADOL HYDROCHLORIDE
     Indication: ARTHRITIS
     Dosage: 50 MG, BID, TAKING FOR LONGER THAN 2 YEARS
  10. CINNAMON. [Concomitant]
     Active Substance: CINNAMON
     Indication: DIABETES MELLITUS
     Dosage: 1000 MG TWICE A DAY, TAKING FOR 2 YEARS
  11. IRON (UNSPECIFIED) [Concomitant]
     Active Substance: IRON
     Indication: ANAEMIA
     Dosage: 65 MG,ONE A DAY
  12. XELJANZ [Concomitant]
     Active Substance: TOFACITINIB CITRATE
     Indication: RHEUMATOID ARTHRITIS
     Dosage: 5 MG, ONCE DAILY
  13. PREDNISONE. [Concomitant]
     Active Substance: PREDNISONE
     Dosage: UNK
     Dates: start: 2016, end: 20171010
  14. BAYER ASPIRIN [Concomitant]
     Active Substance: ASPIRIN
     Indication: DIABETES MELLITUS
     Dosage: 81 MG, QD, MORE THAN 30 YEARS
  15. BIOTIN [Concomitant]
     Active Substance: BIOTIN
     Indication: HAIR DISORDER
     Dosage: 1000 MICROGRAM DAILY, TAKING FOR ATLEASET 2 YEARS
  16. LEFLUNOMIDE. [Concomitant]
     Active Substance: LEFLUNOMIDE
     Indication: ARTHRITIS
     Dosage: 20 MG, ONE TABLET DAILY, TAKING FOR MORE THAN 2 YEARS
  17. HYDROXYCHLOROQUINE SULFATE. [Concomitant]
     Active Substance: HYDROXYCHLOROQUINE SULFATE
     Indication: ARTHRITIS
     Dosage: 200 MG, BID, TAKING FOR MORE THAN 2 YEARS

REACTIONS (3)
  - Renal disorder [Unknown]
  - Product label issue [Unknown]
  - Product use in unapproved indication [Unknown]
